FAERS Safety Report 20061116 (Version 11)
Quarter: 2022Q2

REPORT INFORMATION
  Report Type: Report from Study
  Country: US (occurrence: US)
  Receive Date: 20211112
  Receipt Date: 20220509
  Transmission Date: 20220720
  Serious: Yes (Other)
  Sender: FDA-Public Use
  Company Number: US-NOVARTISTESTPH-NVSC2021US256021

PATIENT
  Sex: Female

DRUGS (1)
  1. OMNITROPE [Suspect]
     Active Substance: SOMATROPIN
     Indication: Product used for unknown indication
     Dosage: 5 MG, QD
     Route: 058

REACTIONS (7)
  - Brain injury [Unknown]
  - Medical device site warmth [Unknown]
  - Insomnia [Unknown]
  - Malaise [Unknown]
  - Illness [Unknown]
  - Product preparation error [Unknown]
  - Product storage error [Unknown]
